FAERS Safety Report 5496301-9 (Version None)
Quarter: 2007Q4

REPORT INFORMATION
  Report Type: 
  Country: None (occurrence: None)
  Receive Date: 20071025
  Receipt Date: 20070321
  Transmission Date: 20080405
  Serious: No
  Sender: FDA-Public Use
  Company Number: A0644334A

PATIENT
  Sex: Male

DRUGS (3)
  1. ADVAIR DISKUS 100/50 [Suspect]
     Indication: DRUG USE FOR UNKNOWN INDICATION
     Route: 055
  2. TENORMIN [Concomitant]
     Dosage: 50MG PER DAY
     Route: 048
  3. LANOXIN [Concomitant]
     Dosage: .25MG PER DAY

REACTIONS (2)
  - BLOOD PRESSURE FLUCTUATION [None]
  - THERAPEUTIC RESPONSE DECREASED [None]
